FAERS Safety Report 21529156 (Version 1)
Quarter: 2022Q4

REPORT INFORMATION
  Report Type: Spontaneous
  Country: US (occurrence: US)
  Receive Date: 20221031
  Receipt Date: 20221031
  Transmission Date: 20230112
  Serious: No
  Sender: FDA-Public Use
  Company Number: US-TEVA-2022-US-2079155

PATIENT
  Age: 58 Year
  Sex: Female
  Weight: 77.56 kg

DRUGS (1)
  1. AJOVY [Suspect]
     Active Substance: FREMANEZUMAB-VFRM
     Indication: Migraine
     Dosage: 225 MG /1.5 ML, 3 INJECTIONS QUARTERLY
     Route: 065
     Dates: start: 201809

REACTIONS (4)
  - Urinary tract infection [Unknown]
  - Cystitis [Unknown]
  - Product administered at inappropriate site [Unknown]
  - Intercepted product storage error [Unknown]
